FAERS Safety Report 14119888 (Version 1)
Quarter: 2017Q4

REPORT INFORMATION
  Report Type: Report from Study
  Country: HN (occurrence: HN)
  Receive Date: 20171024
  Receipt Date: 20171024
  Transmission Date: 20180321
  Serious: Yes (Hospitalization)
  Sender: FDA-Public Use
  Company Number: HN-ASTRAZENECA-2017SF05953

PATIENT
  Age: 32824 Day
  Sex: Female

DRUGS (1)
  1. ATACAND PLUS [Suspect]
     Active Substance: CANDESARTAN CILEXETIL\HYDROCHLOROTHIAZIDE
     Indication: HYPERTENSION
     Route: 048
     Dates: start: 20140124

REACTIONS (2)
  - Dysstasia [Recovered/Resolved]
  - Blood sodium decreased [Recovered/Resolved]

NARRATIVE: CASE EVENT DATE: 20170412
